FAERS Safety Report 9053999 (Version 1)
Quarter: 2013Q2

REPORT INFORMATION
  Report Type: Spontaneous
  Country: US (occurrence: None)
  Receive Date: 20130201
  Receipt Date: 20130201
  Transmission Date: 20140414
  Serious: Yes (Hospitalization)
  Sender: FDA-Public Use
  Company Number: None

PATIENT
  Age: 66 Year
  Sex: Male
  Weight: 60.96 kg

DRUGS (9)
  1. GANETESPIB [Suspect]
     Indication: ADENOCARCINOMA PANCREAS
     Dates: start: 20121130, end: 20121214
  2. PROVENTIL [Concomitant]
  3. ASMANEX [Concomitant]
  4. QUAIFENESIN [Concomitant]
  5. RAMITIDINE [Concomitant]
  6. SPIRIVA LOPERAMIDE PROCHLORPERAZIE MELEATE [Concomitant]
  7. POLYETHYLENE GLYCOL 3350 POWDER [Concomitant]
  8. OXYCODON [Concomitant]
  9. AUGMENTIN [Concomitant]

REACTIONS (8)
  - Myalgia [None]
  - Hypophagia [None]
  - Chills [None]
  - Deep vein thrombosis [None]
  - Failure to thrive [None]
  - Pulmonary embolism [None]
  - Adenocarcinoma pancreas [None]
  - Malignant neoplasm progression [None]
